FAERS Safety Report 9072980 (Version 1)
Quarter: 2013Q1

REPORT INFORMATION
  Report Type: Report from Study
  Country: US (occurrence: US)
  Receive Date: 20130129
  Receipt Date: 20130129
  Transmission Date: 20140127
  Serious: No
  Sender: FDA-Public Use
  Company Number: US-ABBOTT-12P-163-0932275-00

PATIENT
  Age: 53 Year
  Sex: Female

DRUGS (11)
  1. HUMIRA 40 MG/0.8 ML PEN [Suspect]
     Indication: CROHN^S DISEASE
     Dates: start: 201001
  2. VITAMIN B12 [Concomitant]
     Indication: VITAMIN B COMPLEX DEFICIENCY
     Dosage: WEEKLY
  3. VIT B SUBLINGUAL [Concomitant]
     Indication: VITAMIN B COMPLEX DEFICIENCY
     Dosage: DAILY
  4. MULTIVITAMINS [Concomitant]
     Indication: PRODUCT USED FOR UNKNOWN INDICATION
     Dosage: DAILY
  5. MINERALS [Concomitant]
     Indication: PRODUCT USED FOR UNKNOWN INDICATION
     Dosage: DAILY
  6. ALBUTEROL [Concomitant]
     Indication: ASTHMA
     Dosage: AS NEEDED
     Route: 055
  7. FLONASE [Concomitant]
     Indication: SEASONAL ALLERGY
     Dosage: DAILY
  8. NORVASC [Concomitant]
     Indication: HYPERTENSION
  9. PERCOCET [Concomitant]
     Indication: PAIN
     Dosage: 5/325MG AND 10/325MG AS NEEDED
  10. FIORICET [Concomitant]
     Indication: MIGRAINE
  11. ZANTAC [Concomitant]
     Indication: GASTROOESOPHAGEAL REFLUX DISEASE

REACTIONS (3)
  - Crohn^s disease [Recovering/Resolving]
  - Pain [Recovering/Resolving]
  - Arthralgia [Recovering/Resolving]
